FAERS Safety Report 21292314 (Version 1)
Quarter: 2022Q3

REPORT INFORMATION
  Report Type: Spontaneous
  Country: NL (occurrence: NL)
  Receive Date: 20220905
  Receipt Date: 20220905
  Transmission Date: 20221027
  Serious: Yes (Death, Hospitalization, Other)
  Sender: FDA-Public Use
  Company Number: NL-AMGEN-NLDSP2022147527

PATIENT
  Age: 58 Year
  Sex: Female

DRUGS (11)
  1. ADALIMUMAB [Suspect]
     Active Substance: ADALIMUMAB
     Indication: COVID-19
     Route: 065
  2. ADALIMUMAB [Suspect]
     Active Substance: ADALIMUMAB
     Indication: Herpes simplex
  3. ADALIMUMAB [Suspect]
     Active Substance: ADALIMUMAB
     Indication: Psoriatic arthropathy
  4. METHOTREXATE [Concomitant]
     Active Substance: METHOTREXATE
  5. ETOPOSIDE [Concomitant]
     Active Substance: ETOPOSIDE
     Indication: Haemophagocytic lymphohistiocytosis
     Dosage: 100 MILLIGRAM, QWK
  6. DEXAMETHASONE [Concomitant]
     Active Substance: DEXAMETHASONE
     Indication: Haemophagocytic lymphohistiocytosis
     Dosage: 10 MILLIGRAM/M2 DAILY FOR 2 WEEKS
  7. IMMUNE GLOBULIN NOS [Concomitant]
     Active Substance: IMMUNE GLOBULIN NOS
     Indication: Haemophagocytic lymphohistiocytosis
     Dosage: 1 GRAM/KG DAILY FOR 2 DAYS
  8. ANAKINRA [Concomitant]
     Active Substance: ANAKINRA
     Indication: Haemophagocytic lymphohistiocytosis
     Dosage: 5 MILLIGRAM/KG
  9. PIPERACILLIN SODIUM\TAZOBACTAM SODIUM [Concomitant]
     Active Substance: PIPERACILLIN SODIUM\TAZOBACTAM SODIUM
     Dosage: 4G/500MG
  10. HYDROCORTISONE [Concomitant]
     Active Substance: HYDROCORTISONE
     Dosage: 50 MILLIGRAM, QID
  11. TOCILIZUMAB [Concomitant]
     Active Substance: TOCILIZUMAB
     Dosage: 8 MILLIGRAM/KG

REACTIONS (9)
  - Haemophagocytic lymphohistiocytosis [Fatal]
  - Disseminated tuberculosis [Fatal]
  - SARS-CoV-2 antibody test positive [Unknown]
  - COVID-19 pneumonia [Unknown]
  - Cytomegalovirus infection [Unknown]
  - Miliary pneumonia [Unknown]
  - Herpes simplex pneumonia [Unknown]
  - Granuloma [Unknown]
  - Epstein-Barr virus infection [Unknown]
